FAERS Safety Report 9718916 (Version 1)
Quarter: 2013Q4

REPORT INFORMATION
  Report Type: Spontaneous
  Country: NL (occurrence: None)
  Receive Date: 20131126
  Receipt Date: 20131126
  Transmission Date: 20140711
  Serious: Yes (Other)
  Sender: FDA-Public Use
  Company Number: NL-CEHPHARM-20131065

PATIENT
  Sex: Female

DRUGS (4)
  1. OMEPRAZOLE [Suspect]
     Indication: GASTROOESOPHAGEAL REFLUX DISEASE
     Dosage: DOSE  : 40 MG (MILLIGRAM(S)  SEP. DOSAGES / INTERVAL: 1 DAYS
  2. CANDESARTAN [Concomitant]
  3. LEVOTHYROXINE [Concomitant]
  4. SIMVASTATIN [Suspect]

REACTIONS (1)
  - Subacute cutaneous lupus erythematosus [None]
